FAERS Safety Report 9949117 (Version 1)
Quarter: 2014Q1

REPORT INFORMATION
  Report Type: Spontaneous
  Country: US (occurrence: US)
  Receive Date: 20140304
  Receipt Date: 20140304
  Transmission Date: 20141002
  Serious: No
  Sender: FDA-Public Use
  Company Number: US-PFIZER INC-2014060932

PATIENT
  Age: 66 Year
  Sex: Female

DRUGS (5)
  1. MEDROL [Suspect]
     Dosage: UNK
  2. LEVOFLOXACIN [Suspect]
     Dosage: UNK
  3. NUBAIN [Suspect]
     Dosage: UNK
  4. ASA [Suspect]
     Dosage: UNK
  5. TOLMETIN [Suspect]
     Dosage: UNK

REACTIONS (1)
  - Drug hypersensitivity [Unknown]
